FAERS Safety Report 9952211 (Version 1)
Quarter: 2014Q1

REPORT INFORMATION
  Report Type: Report from Study
  Country: US (occurrence: US)
  Receive Date: 20140304
  Receipt Date: 20140304
  Transmission Date: 20141002
  Serious: No
  Sender: FDA-Public Use
  Company Number: US-ABBVIE-13P-163-1075922-00

PATIENT
  Age: 53 Year
  Sex: Male
  Weight: 83.99 kg

DRUGS (3)
  1. HUMIRA [Suspect]
     Indication: CROHN^S DISEASE
     Dosage: 160MG LOADING DOSE
     Dates: start: 20130315, end: 20130315
  2. HUMIRA [Suspect]
     Dosage: 80MG LOADING DOSE
     Dates: start: 20130322, end: 20130322
  3. HUMIRA [Suspect]
     Indication: CROHN^S DISEASE
     Dates: start: 20130329

REACTIONS (3)
  - Haematochezia [Recovered/Resolved]
  - Abdominal pain [Recovered/Resolved]
  - Diarrhoea [Recovered/Resolved]
